FAERS Safety Report 5833152-7 (Version None)
Quarter: 2008Q3

REPORT INFORMATION
  Report Type: 
  Country: None (occurrence: None)
  Receive Date: 20080731
  Receipt Date: 20080717
  Transmission Date: 20090109
  Serious: Yes (Hospitalization)
  Sender: FDA-Public Use
  Company Number: 2008US001783

PATIENT
  Age: 42 Year
  Sex: Female
  Weight: 48 kg

DRUGS (3)
  1. PROGRAF [Suspect]
     Indication: ALCOHOL WITHDRAWAL SYNDROME
     Dosage: 2.1 MG/KG, UID/QD, IV DRIP
     Route: 041
  2. MULTIVITAMINS (ERGOCALCIFEROL, THIAMINE HYDROCHLORIDE, RETINOL, PANTHE [Concomitant]
  3. FOLATE (FOLIC ACID) [Concomitant]

REACTIONS (12)
  - ALCOHOL WITHDRAWAL SYNDROME [None]
  - ANGIOEDEMA [None]
  - DRUG TOXICITY [None]
  - FATIGUE [None]
  - HYPERTENSION [None]
  - LIP SWELLING [None]
  - METABOLIC ACIDOSIS [None]
  - NECK PAIN [None]
  - RENAL FAILURE [None]
  - ROAD TRAFFIC ACCIDENT [None]
  - TACHYCARDIA [None]
  - WRONG DRUG ADMINISTERED [None]
